FAERS Safety Report 13050081 (Version 2)
Quarter: 2018Q3

REPORT INFORMATION
  Report Type: Other
  Country: US (occurrence: US)
  Receive Date: 20161221
  Receipt Date: 20180716
  Transmission Date: 20181010
  Serious: Yes (Hospitalization)
  Sender: FDA-Public Use
  Company Number: US-AIRGAS USA-1061095

PATIENT
  Age: 38 Year
  Sex: Male

DRUGS (1)
  1. NITROUS OXIDE. [Suspect]
     Active Substance: NITROUS OXIDE

REACTIONS (2)
  - Subacute combined cord degeneration [Unknown]
  - Acute psychosis [Unknown]
